FAERS Safety Report 8909555 (Version 2)
Quarter: 2012Q4

REPORT INFORMATION
  Report Type: 
  Country: AU (occurrence: AU)
  Receive Date: 20121115
  Receipt Date: 20121120
  Transmission Date: 20130627
  Serious: Yes (Death, Other)
  Sender: FDA-Public Use
  Company Number: AU-AMGEN-AUSSP2012072617

PATIENT
  Sex: Male

DRUGS (2)
  1. NPLATE [Suspect]
     Indication: IDIOPATHIC THROMBOCYTOPENIC PURPURA
     Dosage: 6 mug/kg, UNK
  2. OTHER CHEMOTHERAPEUTICS [Concomitant]

REACTIONS (4)
  - T-cell lymphoma [Fatal]
  - Epstein-Barr virus infection [Unknown]
  - Lymphadenopathy [Unknown]
  - Malaise [Unknown]
